FAERS Safety Report 8183724-2 (Version None)
Quarter: 2012Q1

REPORT INFORMATION
  Report Type: 
  Country: None (occurrence: None)
  Receive Date: 20120305
  Receipt Date: 20120224
  Transmission Date: 20120608
  Serious: Yes (Other)
  Sender: FDA-Public Use
  Company Number: US-JNJFOC-20120213592

PATIENT
  Sex: Female
  Weight: 49.9 kg

DRUGS (7)
  1. XARELTO [Suspect]
     Indication: ATRIAL FIBRILLATION
     Route: 048
     Dates: start: 20120123
  2. LEVOTHYROXINE SODIUM [Concomitant]
     Indication: THYROID DISORDER
     Route: 048
  3. CITRACAL [Concomitant]
     Indication: MEDICAL DIET
     Route: 048
  4. FISH OIL [Concomitant]
     Indication: MEDICAL DIET
     Route: 048
  5. AMLODIPINE [Concomitant]
     Indication: BLOOD PRESSURE
     Route: 048
  6. GABAPENTIN [Concomitant]
     Indication: CONVULSION
     Route: 048
  7. VITAMIN D [Concomitant]
     Indication: MEDICAL DIET
     Route: 048

REACTIONS (5)
  - HEADACHE [None]
  - BLOOD URINE PRESENT [None]
  - VISION BLURRED [None]
  - TRANSIENT ISCHAEMIC ATTACK [None]
  - SENSATION OF PRESSURE [None]
